FAERS Safety Report 25318315 (Version 1)
Quarter: 2025Q2

REPORT INFORMATION
  Report Type: Spontaneous
  Country: GB (occurrence: GB)
  Receive Date: 20250515
  Receipt Date: 20250515
  Transmission Date: 20250717
  Serious: Yes (Other)
  Sender: SAMSUNG BIOEPIS
  Company Number: None

PATIENT
  Sex: Female

DRUGS (1)
  1. PYZCHIVA [Suspect]
     Active Substance: USTEKINUMAB-TTWE
     Indication: Product used for unknown indication
     Dosage: READY TO USE INJECTION FOR REFRIGERATION;

REACTIONS (4)
  - Arthralgia [Unknown]
  - Hypoaesthesia [Unknown]
  - Gait inability [Unknown]
  - Hypoaesthesia [Unknown]
